FAERS Safety Report 4579517-5 (Version None)
Quarter: 2005Q1

REPORT INFORMATION
  Report Type: 
  Country: None (occurrence: None)
  Receive Date: 20050210
  Receipt Date: 20050114
  Transmission Date: 20050727
  Serious: Yes (Hospitalization)
  Sender: FDA-Public Use
  Company Number: CHPA2005US00584

PATIENT
  Age: 62 Year
  Sex: Female
  Weight: 64.4 kg

DRUGS (7)
  1. MYOFLEX ANALGESIC CREME (NCH)(TRIETHANOLAM SALICYLATE) [Suspect]
     Indication: ARTHRALGIA
     Dosage: 1 APPLICATION, TID
     Dates: start: 20040101, end: 20050101
  2. CONTRAN [Concomitant]
  3. CARBIDOPA W/LEVODOPA (CARBIDOPA, LEVODOPA) [Concomitant]
  4. EFFEXOR [Concomitant]
  5. AMANTADINE (AMANTADINE) [Concomitant]
  6. TRIHEXYPHENIDYL HCL [Concomitant]
  7. LORAZEPAM [Concomitant]

REACTIONS (3)
  - APPLICATION SITE ERYTHEMA [None]
  - APPLICATION SITE IRRITATION [None]
  - APPLICATION SITE PAIN [None]
